FAERS Safety Report 21602804 (Version 1)
Quarter: 2022Q4

REPORT INFORMATION
  Report Type: Spontaneous
  Country: US (occurrence: None)
  Receive Date: 20221115
  Receipt Date: 20221115
  Transmission Date: 20230113
  Serious: Yes (Disabling, Other)
  Sender: FDA-Public Use
  Company Number: None

PATIENT
  Age: 35 Year
  Sex: Female
  Weight: 112.5 kg

DRUGS (5)
  1. TOPIRAMATE [Suspect]
     Active Substance: TOPIRAMATE
     Indication: Migraine
     Dosage: OTHER QUANTITY : 4 TABLET(S);?FREQUENCY : AT BEDTIME;?
     Route: 048
  2. TOPIRAMATE [Suspect]
     Active Substance: TOPIRAMATE
     Indication: Tremor
  3. HYDROCHLOROTHIAZIDE [Concomitant]
     Active Substance: HYDROCHLOROTHIAZIDE
  4. LEVOTHYROXINE [Concomitant]
     Active Substance: LEVOTHYROXINE
  5. OMEPRAZOLE [Concomitant]
     Active Substance: OMEPRAZOLE

REACTIONS (9)
  - Bradyphrenia [None]
  - Dyskinesia [None]
  - Photosensitivity reaction [None]
  - Hyperacusis [None]
  - Seizure [None]
  - Eye movement disorder [None]
  - Decreased appetite [None]
  - Dizziness [None]
  - Ill-defined disorder [None]

NARRATIVE: CASE EVENT DATE: 20221017
